FAERS Safety Report 24944867 (Version 1)
Quarter: 2025Q1

REPORT INFORMATION
  Report Type: Spontaneous
  Country: US (occurrence: US)
  Receive Date: 20250208
  Receipt Date: 20250208
  Transmission Date: 20250409
  Serious: No
  Sender: ABBVIE
  Company Number: US-ABBVIE-6118175

PATIENT
  Sex: Female

DRUGS (1)
  1. DELZICOL [Suspect]
     Active Substance: MESALAMINE
     Indication: Colitis ulcerative
     Route: 048

REACTIONS (3)
  - Dementia [Unknown]
  - Product use complaint [Unknown]
  - Multimorbidity [Unknown]
